FAERS Safety Report 25552866 (Version 1)
Quarter: 2025Q3

REPORT INFORMATION
  Report Type: Spontaneous
  Country: TW (occurrence: TW)
  Receive Date: 20250715
  Receipt Date: 20250715
  Transmission Date: 20251021
  Serious: Yes (Other)
  Sender: NOVARTIS
  Company Number: TW-002147023-NVSC2025TW110898

PATIENT
  Age: 49 Year
  Sex: Male

DRUGS (2)
  1. TRILEPTAL [Suspect]
     Active Substance: OXCARBAZEPINE
     Indication: Facial spasm
     Dosage: 300 MG, BID
     Route: 048
     Dates: start: 20241024, end: 20241026
  2. BORIC ACID\ZINC OXIDE [Suspect]
     Active Substance: BORIC ACID\ZINC OXIDE
     Indication: Product used for unknown indication
     Dosage: 1 DOSAGE FORM, BID (50)
     Route: 065

REACTIONS (2)
  - Muscle spasms [Recovered/Resolved]
  - Pain in extremity [Unknown]

NARRATIVE: CASE EVENT DATE: 20241025
